FAERS Safety Report 7988919-6 (Version None)
Quarter: 2011Q4

REPORT INFORMATION
  Report Type: 
  Country: None (occurrence: None)
  Receive Date: 20111219
  Receipt Date: 20111212
  Transmission Date: 20120403
  Serious: Yes (Death)
  Sender: FDA-Public Use
  Company Number: GB-ELI_LILLY_AND_COMPANY-GB201109006639

PATIENT
  Sex: Male

DRUGS (3)
  1. METFORMIN HCL [Concomitant]
  2. BYETTA [Suspect]
     Indication: WEIGHT CONTROL
     Dosage: 5 UG, BID
     Dates: start: 20110401
  3. BYETTA [Suspect]
     Dosage: 10 UG, BID

REACTIONS (9)
  - DEATH [None]
  - WEIGHT DECREASED [None]
  - MUSCULOSKELETAL STIFFNESS [None]
  - BLOOD GLUCOSE ABNORMAL [None]
  - BLOOD CHOLESTEROL ABNORMAL [None]
  - OFF LABEL USE [None]
  - BLOOD PRESSURE ABNORMAL [None]
  - MENTAL IMPAIRMENT [None]
  - VOMITING [None]
